FAERS Safety Report 10266543 (Version 1)
Quarter: 2014Q2

REPORT INFORMATION
  Report Type: Spontaneous
  Country: US (occurrence: None)
  Receive Date: 20140625
  Receipt Date: 20140625
  Transmission Date: 20141212
  Serious: Yes (Other)
  Sender: FDA-Public Use
  Company Number: None

PATIENT
  Sex: Female

DRUGS (2)
  1. SUMATRIPTAN [Suspect]
     Indication: MIGRAINE
     Dosage: 1/2 TO 1 PILL
     Route: 048
     Dates: start: 20140418
  2. CAFFEINE PILL [Concomitant]

REACTIONS (4)
  - Product substitution issue [None]
  - Therapeutic response changed [None]
  - Drug ineffective [None]
  - Circumstance or information capable of leading to medication error [None]
